FAERS Safety Report 16679691 (Version 27)
Quarter: 2025Q2

REPORT INFORMATION
  Report Type: Spontaneous
  Country: US (occurrence: US)
  Receive Date: 20190807
  Receipt Date: 20250515
  Transmission Date: 20250716
  Serious: Yes (Hospitalization, Other)
  Sender: PFIZER
  Company Number: US-PFIZER INC-2019335382

PATIENT
  Age: 73 Year
  Sex: Female
  Weight: 57 kg

DRUGS (4)
  1. PREMARIN [Suspect]
     Active Substance: ESTROGENS, CONJUGATED
     Indication: Postmenopause
     Dates: start: 1984
  2. PREMARIN [Suspect]
     Active Substance: ESTROGENS, CONJUGATED
     Indication: Hormone replacement therapy
     Dosage: 0.625 MG, 1X/DAY
     Route: 048
  3. PREMARIN [Suspect]
     Active Substance: ESTROGENS, CONJUGATED
     Dosage: 0.625 MG, DAILY
  4. PREMARIN [Suspect]
     Active Substance: ESTROGENS, CONJUGATED
     Dosage: TAKE 1 TABLET(S) EVERY DAY BY ORAL ROUTE FOR 30 DAYS
     Route: 048

REACTIONS (27)
  - Brain injury [Unknown]
  - Concussion [Unknown]
  - Post-traumatic neck syndrome [Unknown]
  - Autoimmune thyroiditis [Unknown]
  - Graves^ disease [Unknown]
  - Crohn^s disease [Unknown]
  - Impaired gastric emptying [Unknown]
  - Decompensated hypothyroidism [Unknown]
  - Tooth fracture [Unknown]
  - Oral disorder [Unknown]
  - Tooth disorder [Unknown]
  - Toothache [Unknown]
  - Temporomandibular pain and dysfunction syndrome [Unknown]
  - Bruxism [Unknown]
  - Illness [Unknown]
  - Visual impairment [Unknown]
  - Feeling abnormal [Unknown]
  - Insomnia [Unknown]
  - Thinking abnormal [Not Recovered/Not Resolved]
  - Stress [Unknown]
  - Discomfort [Unknown]
  - Night sweats [Unknown]
  - Joint range of motion decreased [Unknown]
  - Malaise [Unknown]
  - Muscle injury [Unknown]
  - Cardiac disorder [Unknown]
  - Fall [Unknown]
